FAERS Safety Report 7544270-X (Version None)
Quarter: 2011Q2

REPORT INFORMATION
  Report Type: 
  Country: None (occurrence: None)
  Receive Date: 20110613
  Receipt Date: 20071101
  Transmission Date: 20111010
  Serious: Yes (Death, Hospitalization, Other)
  Sender: FDA-Public Use
  Company Number: PHEH2007US12237

PATIENT
  Sex: Male

DRUGS (10)
  1. TYLENOL-500 [Concomitant]
  2. ASCORBIC ACID [Concomitant]
  3. POTASSIUM CHLORIDE [Concomitant]
  4. LASIX [Concomitant]
     Dosage: 40 MG, QD
  5. MECLIZINE [Concomitant]
  6. TRANSFUSIONS [Concomitant]
  7. INSULIN [Concomitant]
  8. EXJADE [Suspect]
     Dosage: 500 MG, QD
     Route: 048
     Dates: start: 20060911
  9. PRILOSEC [Concomitant]
  10. VITAMIN D [Concomitant]

REACTIONS (24)
  - PETECHIAE [None]
  - HAEMOGLOBIN DECREASED [None]
  - ANTIBODY TEST NEGATIVE [None]
  - ANAEMIA [None]
  - BLOOD POTASSIUM DECREASED [None]
  - CHEST X-RAY ABNORMAL [None]
  - REFLUX OESOPHAGITIS [None]
  - ASPIRATION PLEURAL CAVITY [None]
  - BLOOD UREA INCREASED [None]
  - BLOOD CREATININE INCREASED [None]
  - MYELODYSPLASTIC SYNDROME [None]
  - CARDIAC FAILURE CONGESTIVE [None]
  - DYSPNOEA [None]
  - BLOOD ALBUMIN DECREASED [None]
  - BREATH SOUNDS ABNORMAL [None]
  - BLOOD BILIRUBIN ABNORMAL [None]
  - BLOOD GLUCOSE INCREASED [None]
  - PLEURAL EFFUSION [None]
  - HYPOTENSION [None]
  - WAIST CIRCUMFERENCE INCREASED [None]
  - NEOPLASM MALIGNANT [None]
  - WHITE BLOOD CELL COUNT DECREASED [None]
  - THROMBOCYTOPENIA [None]
  - GLOMERULAR FILTRATION RATE ABNORMAL [None]
